FAERS Safety Report 24649956 (Version 1)
Quarter: 2024Q4

REPORT INFORMATION
  Report Type: Spontaneous
  Country: US (occurrence: US)
  Receive Date: 20241122
  Receipt Date: 20241122
  Transmission Date: 20250115
  Serious: Yes (Other)
  Sender: AUROBINDO
  Company Number: US-AUROBINDO-AUR-APL-2024-057411

PATIENT
  Sex: Female

DRUGS (2)
  1. TRAMADOL [Suspect]
     Active Substance: TRAMADOL
     Indication: Back pain
     Dosage: UNK
     Route: 065
  2. AYVAKIT [Suspect]
     Active Substance: AVAPRITINIB
     Indication: Systemic mastocytosis
     Dosage: 25 MILLIGRAM, ONCE A DAY
     Route: 065
     Dates: start: 20180401

REACTIONS (9)
  - Renal impairment [Unknown]
  - Hepatic function abnormal [Unknown]
  - Back pain [Unknown]
  - Cognitive disorder [Unknown]
  - Somnolence [Unknown]
  - Memory impairment [Unknown]
  - Blood cholesterol increased [Unknown]
  - Hypertension [Unknown]
  - Intentional dose omission [Unknown]
